FAERS Safety Report 12706737 (Version 15)
Quarter: 2020Q2

REPORT INFORMATION
  Report Type: Report from Study
  Country: CA (occurrence: CA)
  Receive Date: 20160901
  Receipt Date: 20200413
  Transmission Date: 20200713
  Serious: Yes (Other)
  Sender: FDA-Public Use
  Company Number: CA-BRISTOL-MYERS SQUIBB COMPANY-BMS-2016-036498

PATIENT
  Age: 59 Year
  Sex: Female

DRUGS (15)
  1. SULFASALAZINE. [Concomitant]
     Active Substance: SULFASALAZINE
     Indication: PRODUCT USED FOR UNKNOWN INDICATION
     Route: 065
  2. PANTOPRAZOLE [Concomitant]
     Active Substance: PANTOPRAZOLE
     Indication: PRODUCT USED FOR UNKNOWN INDICATION
     Route: 065
  3. SALBUTAMOL [Concomitant]
     Active Substance: ALBUTEROL
     Indication: PRODUCT USED FOR UNKNOWN INDICATION
     Route: 065
  4. METHOTREXATE. [Suspect]
     Active Substance: METHOTREXATE
     Indication: PRODUCT USED FOR UNKNOWN INDICATION
     Route: 065
  5. SINGULAIR [Concomitant]
     Active Substance: MONTELUKAST SODIUM
     Indication: PRODUCT USED FOR UNKNOWN INDICATION
     Route: 065
  6. SALAZOPYRIN [Suspect]
     Active Substance: SULFASALAZINE
     Indication: PRODUCT USED FOR UNKNOWN INDICATION
     Dosage: UNK
     Route: 065
  7. COVERSYL [PERINDOPRIL ARGININE] [Concomitant]
     Active Substance: PERINDOPRIL ARGININE
     Indication: PRODUCT USED FOR UNKNOWN INDICATION
     Route: 065
  8. RIVA PERINDOPRIL [Concomitant]
     Indication: PRODUCT USED FOR UNKNOWN INDICATION
     Dosage: UNK
     Route: 065
  9. ABATACEPT [Suspect]
     Active Substance: ABATACEPT
     Indication: RHEUMATOID ARTHRITIS
     Dosage: 750 MILLIGRAM, Q4WK
     Route: 042
     Dates: start: 20151218
  10. ALVESCO [Concomitant]
     Active Substance: CICLESONIDE
     Indication: PRODUCT USED FOR UNKNOWN INDICATION
     Route: 065
  11. PREDNISON [Concomitant]
     Active Substance: PREDNISONE
     Indication: PRODUCT USED FOR UNKNOWN INDICATION
     Route: 065
  12. ARNUITY ELLIPTA [Concomitant]
     Active Substance: FLUTICASONE FUROATE
     Indication: PRODUCT USED FOR UNKNOWN INDICATION
     Dosage: UNK
     Route: 065
  13. VENTOLIN [Concomitant]
     Active Substance: ALBUTEROL SULFATE
     Indication: PRODUCT USED FOR UNKNOWN INDICATION
     Route: 065
  14. MONTELUKAST [Concomitant]
     Active Substance: MONTELUKAST SODIUM
     Indication: PRODUCT USED FOR UNKNOWN INDICATION
     Route: 065
  15. RIVA CAL D1000 [Concomitant]
     Indication: PRODUCT USED FOR UNKNOWN INDICATION
     Dosage: UNK
     Route: 065

REACTIONS (33)
  - Nausea [Unknown]
  - Poor venous access [Recovered/Resolved]
  - Epistaxis [Unknown]
  - Abdominal pain [Unknown]
  - Gastrooesophageal reflux disease [Unknown]
  - Asthma [Unknown]
  - Rectal haemorrhage [Unknown]
  - Arthralgia [Unknown]
  - Abdominal pain upper [Unknown]
  - Hypertension [Unknown]
  - Hepatic steatosis [Unknown]
  - Asthenia [Recovered/Resolved]
  - Abdominal discomfort [Unknown]
  - Iron deficiency anaemia [Unknown]
  - Fibula fracture [Unknown]
  - Rheumatoid arthritis [Unknown]
  - Fatigue [Unknown]
  - Somnolence [Unknown]
  - Gastrointestinal disorder [Unknown]
  - Wound [Recovering/Resolving]
  - Liver scan abnormal [Unknown]
  - Synovial cyst [Unknown]
  - Anal haemorrhage [Unknown]
  - Pain in extremity [Unknown]
  - Headache [Recovered/Resolved]
  - Back pain [Recovering/Resolving]
  - Blood test abnormal [Unknown]
  - Haematochezia [Unknown]
  - Fall [Unknown]
  - Blood pressure systolic increased [Unknown]
  - Anaemia [Unknown]
  - Transaminases increased [Unknown]
  - Hepatic enzyme increased [Unknown]

NARRATIVE: CASE EVENT DATE: 20160506
